FAERS Safety Report 7914677-7 (Version None)
Quarter: 2011Q4

REPORT INFORMATION
  Report Type: 
  Country: None (occurrence: None)
  Receive Date: 20111115
  Receipt Date: 20111108
  Transmission Date: 20120403
  Serious: Yes (Death, Hospitalization)
  Sender: FDA-Public Use
  Company Number: PHFR2011GB006426

PATIENT
  Age: 41 Year
  Sex: Male

DRUGS (4)
  1. CLOZAPINE [Suspect]
     Route: 048
  2. CITALOPRAM HYDROBROMIDE [Suspect]
  3. PROCYCLIDINE HYDROCHLORIDE 2MG TAB [Suspect]
  4. DIAZEPAM [Suspect]

REACTIONS (7)
  - ASPIRATION [None]
  - HYPOTENSION [None]
  - GRAND MAL CONVULSION [None]
  - CIRCULATORY COLLAPSE [None]
  - COMA SCALE ABNORMAL [None]
  - CARDIAC ARREST [None]
  - OVERDOSE [None]
